FAERS Safety Report 7461546 (Version 6)
Quarter: 2013Q3

REPORT INFORMATION
  Report Type: Report from Study
  Country: CA (occurrence: CA)
  Receive Date: 20100709
  Receipt Date: 20130916
  Transmission Date: 20140515
  Serious: Yes (Death, Other)
  Sender: FDA-Public Use
  Company Number: PHHY2010CA41850

PATIENT
  Sex: Female

DRUGS (3)
  1. EXJADE [Suspect]
     Indication: MYELODYSPLASTIC SYNDROME
     Dosage: 1550 MG, QD
     Route: 048
  2. EXJADE [Suspect]
     Dosage: 1250 MG, QD
     Route: 048
  3. EXJADE [Suspect]
     Dosage: 1500 MG, UNK
     Route: 048

REACTIONS (9)
  - Death [Fatal]
  - Renal impairment [Unknown]
  - Serum ferritin increased [Unknown]
  - Diarrhoea [Recovered/Resolved]
  - Mucous stools [Unknown]
  - Infection [Unknown]
  - Eczema [Unknown]
  - Urticaria [Unknown]
  - Fatigue [Unknown]
